FAERS Safety Report 9259387 (Version 2)
Quarter: 2013Q2

REPORT INFORMATION
  Report Type: Spontaneous
  Country: US (occurrence: US)
  Receive Date: 20130427
  Receipt Date: 20130603
  Transmission Date: 20140414
  Serious: No
  Sender: FDA-Public Use
  Company Number: US-ASTRAZENECA-2013SE24183

PATIENT
  Age: 94 Year
  Sex: Male
  Weight: 73.5 kg

DRUGS (15)
  1. ATENOLOL [Suspect]
     Indication: HYPERTENSION
     Route: 048
  2. SYMBICORT [Suspect]
     Indication: CHRONIC OBSTRUCTIVE PULMONARY DISEASE
     Dosage: 160/4.5 MCG, 2 PUFFS BID
     Route: 055
     Dates: start: 2011
  3. SYMBICORT [Suspect]
     Indication: CHRONIC OBSTRUCTIVE PULMONARY DISEASE
     Dosage: 1 PUFFS DAILY
     Route: 055
  4. SYMBICORT [Suspect]
     Indication: CHRONIC OBSTRUCTIVE PULMONARY DISEASE
     Dosage: 160/4.5 MCG, 2 PUFFS FOUR TIMES A DAY
     Route: 055
  5. LISINOPRIL [Suspect]
     Indication: HYPERTENSION
     Route: 048
  6. ASPIRIN [Suspect]
     Route: 048
     Dates: end: 2013
  7. PROAIR HFA [Concomitant]
     Indication: WHEEZING
     Dosage: 90 MCG 1 OR 2 PUFFS QID
     Route: 055
     Dates: start: 201203
  8. PROAIR HFA [Concomitant]
     Indication: DYSPNOEA
     Dosage: 90 MCG 1 OR 2 PUFFS QID
     Route: 055
     Dates: start: 201203
  9. PLAVIX [Concomitant]
     Indication: ANTICOAGULANT THERAPY
     Route: 048
     Dates: start: 2008
  10. VITAMIN C [Concomitant]
     Route: 048
  11. LIPITOR [Concomitant]
     Indication: BLOOD CHOLESTEROL ABNORMAL
     Route: 048
  12. LASIX [Concomitant]
     Indication: JOINT SWELLING
     Route: 048
  13. LASIX [Concomitant]
     Indication: JOINT SWELLING
     Route: 048
  14. ZOLPIDEM TARTRATE [Concomitant]
     Indication: SLEEP DISORDER
     Dosage: PRN
     Route: 048
  15. SAW PALMETTO AND HERB MIXTURE [Concomitant]
     Indication: PROSTATIC DISORDER
     Route: 048
     Dates: start: 2003

REACTIONS (2)
  - Haemorrhage subcutaneous [Unknown]
  - Intentional drug misuse [Unknown]
